FAERS Safety Report 8604836-2 (Version None)
Quarter: 2012Q3

REPORT INFORMATION
  Report Type: 
  Country: None (occurrence: None)
  Receive Date: 20120820
  Receipt Date: 20120810
  Transmission Date: 20120928
  Serious: Yes (Hospitalization, Other)
  Sender: FDA-Public Use
  Company Number: UA-JNJFOC-20120805625

PATIENT
  Age: 37 Year
  Sex: Male
  Weight: 75 kg

DRUGS (2)
  1. INVEGA [Suspect]
     Indication: PSYCHOTIC DISORDER
     Route: 048
     Dates: start: 20110701, end: 20120807
  2. INVEGA [Suspect]
     Indication: SCHIZOAFFECTIVE DISORDER
     Route: 048
     Dates: start: 20110701, end: 20120807

REACTIONS (5)
  - ASTHENIA [None]
  - TACHYCARDIA [None]
  - MYOCARDITIS [None]
  - CONSCIOUSNESS FLUCTUATING [None]
  - PERICARDIAL EFFUSION [None]
